FAERS Safety Report 23144432 (Version 1)
Quarter: 2023Q4

REPORT INFORMATION
  Report Type: Report from Study
  Country: US (occurrence: None)
  Receive Date: 20231103
  Receipt Date: 20231103
  Transmission Date: 20240110
  Serious: Yes (Hospitalization)
  Sender: FDA-Public Use
  Company Number: 2023A247421

PATIENT
  Age: 3897 Week
  Sex: Female

DRUGS (2)
  1. LYNPARZA [Suspect]
     Active Substance: OLAPARIB
     Indication: Ovarian cancer
     Route: 048
     Dates: start: 202309
  2. LYNPARZA [Suspect]
     Active Substance: OLAPARIB
     Indication: Ovarian cancer
     Route: 048
     Dates: start: 202310

REACTIONS (4)
  - Dehydration [Unknown]
  - Hypophagia [Unknown]
  - Fluid intake reduced [Unknown]
  - Weight decreased [Unknown]

NARRATIVE: CASE EVENT DATE: 20220215
